FAERS Safety Report 9229529 (Version 2)
Quarter: 2013Q2

REPORT INFORMATION
  Report Type: Spontaneous
  Country: US (occurrence: US)
  Receive Date: 20130413
  Receipt Date: 20130524
  Transmission Date: 20140414
  Serious: No
  Sender: FDA-Public Use
  Company Number: US-B.I. PHARMACEUTICALS,INC./RIDGEFIELD-2013-BI-09757BP

PATIENT
  Age: 52 Year
  Sex: Male
  Weight: 111 kg

DRUGS (1)
  1. PRADAXA [Suspect]
     Indication: ATRIAL FIBRILLATION
     Dosage: 150 MG
     Route: 048
     Dates: start: 20111212, end: 20130406

REACTIONS (2)
  - Injury [Not Recovered/Not Resolved]
  - Contusion [Not Recovered/Not Resolved]
